FAERS Safety Report 24610999 (Version 1)
Quarter: 2024Q4

REPORT INFORMATION
  Report Type: Spontaneous
  Country: CN (occurrence: CN)
  Receive Date: 20241112
  Receipt Date: 20241112
  Transmission Date: 20250114
  Serious: Yes (Hospitalization, Disabling)
  Sender: NOVARTIS
  Company Number: CN-002147023-NVSC2024CN216447

PATIENT
  Age: 63 Year
  Sex: Male
  Weight: 93.4 kg

DRUGS (1)
  1. SACUBITRIL\VALSARTAN [Suspect]
     Active Substance: SACUBITRIL\VALSARTAN
     Indication: Hypertension
     Dosage: 100.000 MG, QD
     Route: 048
     Dates: start: 20240912, end: 20241012

REACTIONS (3)
  - Blood creatinine increased [Not Recovered/Not Resolved]
  - Oedema peripheral [Not Recovered/Not Resolved]
  - Dyspnoea [Not Recovered/Not Resolved]

NARRATIVE: CASE EVENT DATE: 20241001
